FAERS Safety Report 14144662 (Version 1)
Quarter: 2017Q4

REPORT INFORMATION
  Report Type: Spontaneous
  Country: US (occurrence: US)
  Receive Date: 20171031
  Receipt Date: 20171031
  Transmission Date: 20180321
  Serious: No
  Sender: FDA-Public Use
  Company Number: US-SHIRE-US201718914

PATIENT
  Sex: Female

DRUGS (1)
  1. XIIDRA [Suspect]
     Active Substance: LIFITEGRAST
     Indication: PRODUCT USED FOR UNKNOWN INDICATION
     Dosage: 1 GTT OU BID / DED
     Route: 047
     Dates: start: 20170801

REACTIONS (4)
  - Fatigue [Unknown]
  - Eye discharge [Unknown]
  - Instillation site erythema [Unknown]
  - Instillation site pruritus [Unknown]
